FAERS Safety Report 22197983 (Version 1)
Quarter: 2023Q2

REPORT INFORMATION
  Report Type: Spontaneous
  Country: AM (occurrence: AM)
  Receive Date: 20230411
  Receipt Date: 20230411
  Transmission Date: 20230722
  Serious: Yes (Hospitalization, Other)
  Sender: FDA-Public Use
  Company Number: AM-BAYER-2022A032813

PATIENT
  Age: 70 Year
  Sex: Male

DRUGS (3)
  1. XARELTO [Suspect]
     Active Substance: RIVAROXABAN
     Indication: Atrial thrombosis
     Dosage: 20 MG, QD
     Route: 048
  2. ASPIRIN;MAGNESIUM OXIDE [Concomitant]
     Indication: Atrial thrombosis
  3. CILOSTAZOL [Concomitant]
     Active Substance: CILOSTAZOL
     Indication: Atrial thrombosis

REACTIONS (1)
  - Thrombosis [Unknown]
